FAERS Safety Report 7301275-1 (Version None)
Quarter: 2011Q1

REPORT INFORMATION
  Report Type: 
  Country: None (occurrence: None)
  Receive Date: 20110112
  Receipt Date: 20091103
  Transmission Date: 20110831
  Serious: Yes (Other)
  Sender: FDA-Public Use
  Company Number: THYM-1001221

PATIENT
  Age: 52 Year
  Sex: Male
  Weight: 91.3 kg

DRUGS (36)
  1. NYSTATIN [Concomitant]
  2. FENTANYL CITRATE [Concomitant]
  3. ESOMEPRAZOLE (ESOMEPRAZOLE) [Concomitant]
  4. MULTIVITAMIN [Concomitant]
  5. NALOXONE [Concomitant]
  6. ALBUTEROL [Concomitant]
  7. ALBUMIN (HUMAN) [Concomitant]
  8. HYDROMORPHONE (HYDROMORPHONE) [Concomitant]
  9. TACROLIMUS [Concomitant]
  10. VALGANCICLOVIR HCL [Concomitant]
  11. LIDOCAINE [Concomitant]
  12. THYMOGLOBULIN [Suspect]
  13. ASPIRIN [Concomitant]
  14. SODIUM BICARBONATE IN PLASTIC CONTAINER [Concomitant]
  15. IPRATROPIUM BROMIDE [Concomitant]
  16. MORPHINE [Concomitant]
  17. ONDANSETRON [Concomitant]
  18. PROMETHAZINE [Concomitant]
  19. SODIUM CHLORIDE 0.9% [Concomitant]
  20. CEFOTETAN [Concomitant]
  21. METOPROLOL (METOPROLOL) [Concomitant]
  22. DOPAMINE HCL [Concomitant]
  23. EPOETIN ALFA (EPOETIN ALFA) [Concomitant]
  24. SENNA LAX (SENNOSIDE A+B) [Concomitant]
  25. BACTRIM [Concomitant]
  26. HEPARIN [Concomitant]
  27. THYMOGLOBULIN [Suspect]
     Indication: PROPHYLAXIS AGAINST TRANSPLANT REJECTION
     Dosage: 200 MG, QD, INTRAVENOUS
     Route: 042
     Dates: start: 20090926, end: 20090929
  28. THYMOGLOBULIN [Suspect]
     Indication: RENAL TRANSPLANT
     Dosage: 200 MG, QD, INTRAVENOUS
     Route: 042
     Dates: start: 20090926, end: 20090929
  29. POLYETHYLENE GLYCOL [Concomitant]
  30. BACITRACIN [Concomitant]
  31. LEVALBUTEROL  HYDROCHLORIDE (LEVOSALBUTAMOL HYDROCHLORIDE) [Concomitant]
  32. MAGNESIUM SULFATE [Concomitant]
  33. MYCOPHENOLATE MOFETIL [Concomitant]
  34. DIPHENHYDRAMINE (DIPHENHYDRAMINE) [Concomitant]
  35. FUROSEMIDE [Concomitant]
  36. PAPAVERINE (PAPAVERINE) [Concomitant]

REACTIONS (1)
  - THROMBOCYTOPENIA [None]
